FAERS Safety Report 8347984-7 (Version None)
Quarter: 2012Q2

REPORT INFORMATION
  Report Type: 
  Country: None (occurrence: None)
  Receive Date: 20120509
  Receipt Date: 20120502
  Transmission Date: 20120825
  Serious: Yes (Hospitalization)
  Sender: FDA-Public Use
  Company Number: US-BAYER-2011-011242

PATIENT
  Age: 37 Year
  Sex: Female
  Weight: 99.773 kg

DRUGS (16)
  1. DROSPIRENONE AND ETHINYL ESTRADIOL [Suspect]
     Dosage: UNK
     Dates: start: 20020201, end: 20090301
  2. PREVACID [Concomitant]
     Dosage: UNK
     Dates: start: 20030822
  3. HYOSCYAMINE [Concomitant]
     Dosage: UNK
     Dates: start: 20030822
  4. PRILOSEC [Concomitant]
     Indication: ABDOMINAL PAIN UPPER
     Dosage: UNK
     Dates: start: 20030403
  5. LIBRAX [Concomitant]
  6. ALIMENTARY TRACT AND METABOLISM [Concomitant]
     Indication: ABDOMINAL PAIN UPPER
     Dosage: UNK
  7. ALLEGRA-D 12 HOUR [Concomitant]
     Dosage: UNK
     Dates: start: 20030801
  8. FEXOFENADINE [Concomitant]
  9. YAZ [Suspect]
     Dosage: UNK
     Dates: start: 20020201, end: 20090301
  10. IBUPROFEN (ADVIL) [Concomitant]
  11. LISINOPRIL [Concomitant]
  12. YASMIN [Suspect]
     Dosage: UNK
     Dates: start: 20020201, end: 20090301
  13. EFFEXOR XR [Concomitant]
     Indication: DEPRESSION
     Dosage: UNK
     Dates: start: 20030822
  14. SKELAXIN [Concomitant]
     Indication: FIBROMYALGIA
     Dosage: UNK
     Dates: start: 20050101
  15. CELEBREX [Concomitant]
     Indication: FIBROMYALGIA
     Dosage: UNK
     Dates: start: 20050101
  16. NAPROXEN (ALEVE) [Concomitant]

REACTIONS (8)
  - PULMONARY EMBOLISM [None]
  - CHOLECYSTITIS CHRONIC [None]
  - PAIN [None]
  - GENERAL PHYSICAL HEALTH DETERIORATION [None]
  - GALLBLADDER DISORDER [None]
  - ANXIETY [None]
  - EMOTIONAL DISTRESS [None]
  - DEEP VEIN THROMBOSIS [None]
